FAERS Safety Report 21172687 (Version 2)
Quarter: 2022Q4

REPORT INFORMATION
  Report Type: Spontaneous
  Country: DE (occurrence: DE)
  Receive Date: 20220804
  Receipt Date: 20221014
  Transmission Date: 20230112
  Serious: Yes (Other)
  Sender: FDA-Public Use
  Company Number: DE-TEVA-2022-DE-2061913

PATIENT
  Age: 32 Year
  Sex: Female

DRUGS (2)
  1. COPAXONE [Suspect]
     Active Substance: GLATIRAMER ACETATE
     Indication: Multiple sclerosis
     Route: 065
     Dates: start: 20180706, end: 2019
  2. COPAXONE [Suspect]
     Active Substance: GLATIRAMER ACETATE
     Route: 065
     Dates: start: 20210118

REACTIONS (3)
  - Caesarean section [Unknown]
  - Maternal exposure before pregnancy [Unknown]
  - Normal newborn [Unknown]

NARRATIVE: CASE EVENT DATE: 20200301
